FAERS Safety Report 10025281 (Version 1)
Quarter: 2014Q1

REPORT INFORMATION
  Report Type: Spontaneous
  Country: US (occurrence: US)
  Receive Date: 20140320
  Receipt Date: 20140320
  Transmission Date: 20141002
  Serious: Yes (Other)
  Sender: FDA-Public Use
  Company Number: US-ELI_LILLY_AND_COMPANY-US201403003775

PATIENT
  Sex: Female
  Weight: 76.19 kg

DRUGS (1)
  1. HUMALOG LISPRO [Suspect]
     Indication: DIABETES MELLITUS INADEQUATE CONTROL
     Route: 058

REACTIONS (8)
  - Blood glucose increased [Unknown]
  - Pain [Unknown]
  - Weight increased [Unknown]
  - Irritability [Unknown]
  - Malaise [Unknown]
  - Thirst [Unknown]
  - Fatigue [Unknown]
  - Blood glucose decreased [Unknown]
